FAERS Safety Report 7992510 (Version 2)
Quarter: 2012Q4

REPORT INFORMATION
  Report Type: 
  Country: CA (occurrence: CA)
  Receive Date: 20110615
  Receipt Date: 20121111
  Transmission Date: 20130627
  Serious: Yes (Death, Hospitalization)
  Sender: FDA-Public Use
  Company Number: PHMT2007CA01977

PATIENT
  Sex: Female

DRUGS (7)
  1. SANDOSTATIN LAR [Suspect]
     Indication: CARCINOID TUMOUR
     Dosage: 30 mg, UNK
     Route: 030
     Dates: start: 20070703, end: 20080221
  2. NOVAMILOR [Concomitant]
     Dosage: UNK UKN, QD
  3. HYDROCHLOROTHIAZIDE [Concomitant]
  4. SIMVASTATIN [Concomitant]
     Dosage: 10 mg, QHS
  5. POTASSIUM [Concomitant]
  6. EUROCAL D [Concomitant]
  7. RADIATION THERAPY [Concomitant]

REACTIONS (9)
  - Death [Fatal]
  - Haemorrhage [Unknown]
  - Exposure to radiation [Unknown]
  - Malaise [Unknown]
  - Hypophagia [Unknown]
  - Gastritis erosive [Unknown]
  - Cystitis [Unknown]
  - Blood pressure increased [Unknown]
  - Heart rate decreased [Unknown]
